FAERS Safety Report 8973069 (Version 1)
Quarter: 2012Q4

REPORT INFORMATION
  Report Type: 
  Country: US (occurrence: US)
  Receive Date: 20121218
  Receipt Date: 20121218
  Transmission Date: 20130627
  Serious: No
  Sender: FDA-Public Use
  Company Number: US-BRISTOL-MYERS SQUIBB COMPANY-16981607

PATIENT
  Age: 69 Year
  Sex: Female

DRUGS (11)
  1. ABILIFY [Suspect]
     Indication: DEPRESSION
     Dosage: 20 mg for 4months,15mg 8month,10mg for 30month 5 3years restarted on 1mg
     Dates: start: 20050928
  2. HYDROCHLOROTHIAZIDE [Concomitant]
  3. ATORVASTATIN [Concomitant]
  4. LOSARTAN [Concomitant]
  5. METOPROLOL [Concomitant]
  6. EFFEXOR [Concomitant]
  7. AMBIEN [Concomitant]
  8. METFORMIN [Concomitant]
  9. MELATONIN [Concomitant]
  10. CALCIUM [Concomitant]
  11. MULTIVITAMIN [Concomitant]

REACTIONS (2)
  - Tardive dyskinesia [Not Recovered/Not Resolved]
  - Dry mouth [Not Recovered/Not Resolved]
